FAERS Safety Report 14922298 (Version 1)
Quarter: 2018Q2

REPORT INFORMATION
  Report Type: Spontaneous
  Country: US (occurrence: US)
  Receive Date: 20180502
  Receipt Date: 20180502
  Transmission Date: 20180711
  Serious: Yes (Other)
  Sender: FDA-Public Use
  Company Number: None

PATIENT
  Age: 64 Year
  Sex: Male
  Weight: 121.5 kg

DRUGS (34)
  1. AMLODIPINE BESYLATE. [Concomitant]
     Active Substance: AMLODIPINE BESYLATE
  2. FENOFIBRATE. [Concomitant]
     Active Substance: FENOFIBRATE
  3. AZELASTINE HYDROCHLORIDE NASAL SPRAY [Concomitant]
     Active Substance: AZELASTINE HYDROCHLORIDE
  4. DEPKOTE/DIVALPROEX SODIUM DR [Concomitant]
  5. QUETIAPINE FUMARATE 50MG [Suspect]
     Active Substance: QUETIAPINE FUMARATE
     Indication: ANXIETY
     Dosage: ?          QUANTITY:3 TABLET(S);?
     Route: 048
     Dates: start: 20180101, end: 20180429
  6. ALFUZOSIN ER [Concomitant]
  7. BABY ASPIRIN [Concomitant]
     Active Substance: ASPIRIN
  8. PROBIOTIC 10 NATURE^S BOUNTY [Concomitant]
  9. CALCIUM CHEWS (COSTCO) [Concomitant]
  10. METOPROLOL TARTRATE. [Concomitant]
     Active Substance: METOPROLOL TARTRATE
  11. QUETIAPINE. [Concomitant]
     Active Substance: QUETIAPINE
  12. CIALIS [Concomitant]
     Active Substance: TADALAFIL
  13. CORTIZONE CREAM + OINTMENT [Concomitant]
  14. QUETIAPINE FUMARATE 50MG [Suspect]
     Active Substance: QUETIAPINE FUMARATE
     Indication: SLEEP DISORDER
     Dosage: ?          QUANTITY:3 TABLET(S);?
     Route: 048
     Dates: start: 20180101, end: 20180429
  15. L-METHYL FOLATE (DEPLIN) [Concomitant]
  16. VITAMIN C [Concomitant]
     Active Substance: ASCORBIC ACID
  17. POTASSIUM GLUCONATE [Concomitant]
     Active Substance: POTASSIUM GLUCONATE
  18. QUETIAPINE FUMARATE 50MG [Suspect]
     Active Substance: QUETIAPINE FUMARATE
     Indication: BIPOLAR DISORDER
     Dosage: ?          QUANTITY:3 TABLET(S);?
     Route: 048
     Dates: start: 20180101, end: 20180429
  19. ALLOPURINOL. [Concomitant]
     Active Substance: ALLOPURINOL
  20. FLUVASTATIN SODIUM ER [Concomitant]
     Active Substance: FLUVASTATIN SODIUM
  21. LEVOXYL [Concomitant]
     Active Substance: LEVOTHYROXINE SODIUM
  22. ALBUTEROL. [Concomitant]
     Active Substance: ALBUTEROL
  23. FLONASE SENSIMIST NASAL SPRAY [Concomitant]
  24. IBUPROFEN. [Concomitant]
     Active Substance: IBUPROFEN
  25. SODIUM CHLORIDE. [Concomitant]
     Active Substance: SODIUM CHLORIDE
  26. MAGNESIUM [Concomitant]
     Active Substance: MAGNESIUM
  27. TRAMADOL. [Concomitant]
     Active Substance: TRAMADOL
  28. FEXOFENADINE [Concomitant]
     Active Substance: FEXOFENADINE\FEXOFENADINE HYDROCHLORIDE
  29. SYSTANE ULTRA EYE DROPS [Concomitant]
  30. CELEBREX [Concomitant]
     Active Substance: CELECOXIB
  31. OLOPATADINE. [Concomitant]
     Active Substance: OLOPATADINE
  32. VITAMIN D3 [Concomitant]
     Active Substance: CHOLECALCIFEROL
  33. TYLENOL EXTRA STRENGTH [Concomitant]
     Active Substance: ACETAMINOPHEN
  34. SYSTANE LUBRICANT EYE OINTMENT [Concomitant]

REACTIONS (3)
  - Restless legs syndrome [None]
  - Product quality issue [None]
  - Insomnia [None]

NARRATIVE: CASE EVENT DATE: 20180428
